FAERS Safety Report 9247758 (Version 2)
Quarter: 2013Q3

REPORT INFORMATION
  Report Type: Spontaneous
  Country: US (occurrence: US)
  Receive Date: 20130423
  Receipt Date: 20130705
  Transmission Date: 20140515
  Serious: Yes (Hospitalization, Other)
  Sender: FDA-Public Use
  Company Number: US-ASTRAZENECA-2013SE27188

PATIENT
  Age: 58 Year
  Sex: Female
  Weight: 113.4 kg

DRUGS (21)
  1. NEXIUM [Suspect]
     Indication: GASTROOESOPHAGEAL REFLUX DISEASE
     Route: 048
     Dates: start: 2009, end: 2012
  2. NEXIUM [Suspect]
     Indication: GASTROOESOPHAGEAL REFLUX DISEASE
     Route: 048
     Dates: start: 20090912
  3. ACIPHEX [Concomitant]
     Dates: start: 2009
  4. DEXILANT [Concomitant]
     Dates: start: 2012
  5. MILK OF MAGNESIA [Concomitant]
  6. PHENOBARBITAL [Concomitant]
  7. GABAPENTIN [Concomitant]
  8. SKELEXUM [Concomitant]
  9. HTC [Concomitant]
  10. BENICAR [Concomitant]
  11. HYDROCODONE [Concomitant]
  12. ZOLOFT [Concomitant]
  13. TRAMDOL [Concomitant]
  14. PENICILLIN [Concomitant]
  15. LISINOPRIL [Concomitant]
  16. WELLBUTRIN [Concomitant]
  17. DYLANTIN [Concomitant]
  18. AMLODIPINE [Concomitant]
     Dates: start: 20090519
  19. CYCLOBENZAPRINE [Concomitant]
     Dates: start: 20090526
  20. NIZATIDINE [Concomitant]
     Dates: start: 20090601
  21. HYDROCHLOROTHIAZIDE [Concomitant]
     Dates: start: 20090711

REACTIONS (11)
  - Knee arthroplasty [Unknown]
  - Foot fracture [Unknown]
  - Osteoporosis [Unknown]
  - Bone density decreased [Unknown]
  - Multiple fractures [Unknown]
  - Cataract [Unknown]
  - Depression [Unknown]
  - Contusion [Unknown]
  - Foot deformity [Unknown]
  - Morton^s neuralgia [Unknown]
  - Neuropathy peripheral [Unknown]
